FAERS Safety Report 14766960 (Version 1)
Quarter: 2018Q2

REPORT INFORMATION
  Report Type: Spontaneous
  Country: US (occurrence: US)
  Receive Date: 20180417
  Receipt Date: 20180417
  Transmission Date: 20180711
  Serious: No
  Sender: FDA-Public Use
  Company Number: US-BRISTOL-MYERS SQUIBB COMPANY-BMS-2018-034188

PATIENT
  Age: 98 Year
  Sex: Female

DRUGS (1)
  1. ELIQUIS [Suspect]
     Active Substance: APIXABAN
     Indication: CEREBROVASCULAR ACCIDENT PROPHYLAXIS
     Dosage: UNAVAILABLE
     Route: 065

REACTIONS (10)
  - Somnolence [Unknown]
  - Musculoskeletal pain [Unknown]
  - Headache [Unknown]
  - Neck pain [Unknown]
  - Balance disorder [Unknown]
  - Arthralgia [Unknown]
  - Pain in jaw [Unknown]
  - Dizziness [Unknown]
  - Asthenia [Unknown]
  - Hypoaesthesia [Unknown]
